FAERS Safety Report 6411001-6 (Version None)
Quarter: 2009Q4

REPORT INFORMATION
  Report Type: 
  Country: None (occurrence: None)
  Receive Date: 20091022
  Receipt Date: 20091016
  Transmission Date: 20100525
  Serious: Yes (Death)
  Sender: FDA-Public Use
  Company Number: DE-GILEAD-E2B_00000468

PATIENT
  Sex: Female
  Weight: 62 kg

DRUGS (4)
  1. AMBRISENTAN [Suspect]
     Indication: PULMONARY HYPERTENSION
     Route: 048
     Dates: start: 20090911
  2. METHOTREXATE [Suspect]
     Indication: RHEUMATOID ARTHRITIS
  3. PREDNISOLONE [Suspect]
     Indication: RHEUMATOID ARTHRITIS
  4. MARCUMAR [Suspect]
     Indication: PULMONARY EMBOLISM

REACTIONS (2)
  - PNEUMONIA [None]
  - SEPTIC SHOCK [None]
